FAERS Safety Report 8622907-1 (Version None)
Quarter: 2012Q3

REPORT INFORMATION
  Report Type: 
  Country: None (occurrence: None)
  Receive Date: 20120827
  Receipt Date: 20120821
  Transmission Date: 20120928
  Serious: Yes (Other)
  Sender: FDA-Public Use
  Company Number: PHEH2012US012176

PATIENT
  Sex: Female

DRUGS (33)
  1. VENTILAN [Concomitant]
  2. ALBUTEROL [Concomitant]
     Dosage: 0.06 %,
  3. VITAMIN D [Concomitant]
     Dosage: 1000 IU,
  4. CINNAMON [Concomitant]
     Dosage: 500 MG,
  5. LIDEX [Concomitant]
  6. RESTASIS [Concomitant]
     Dosage: 0.05 MG,
  7. BRIMONIDINE TARTRATE [Concomitant]
     Dosage: 1 DROP EACH EYE PER DAY
  8. CALCIUM CARBONATE [Concomitant]
     Dosage: 500 MG,
     Route: 048
  9. ZANAFLEX [Concomitant]
     Dosage: 4 MG,
  10. EPIPEN [Concomitant]
     Dosage: 0.3 MG,
  11. NITROSTAT [Concomitant]
     Dosage: 0.4 MG,
  12. NORCO [Concomitant]
  13. MULTIVITAMINS, OTHER COMBINATIONS [Concomitant]
  14. ASCORBIC ACID [Concomitant]
     Dosage: 1000 MG,
  15. ZOFRAN [Concomitant]
     Dosage: 4 MG
  16. VITAMIN D [Concomitant]
     Dosage: 500 IU,
  17. POTASSIUM FLOURIDE [Concomitant]
     Dosage: 750 MG,
  18. VALIUM [Concomitant]
     Dosage: 10 MG,
     Route: 048
  19. VIVELLE-DOT [Suspect]
     Indication: MENOPAUSE
     Dosage: 0.1 MG, BIW
     Route: 062
     Dates: end: 20120702
  20. MULTAQ [Concomitant]
     Dosage: 400 MG,
  21. XANAX [Concomitant]
     Dosage: 1 MG
     Route: 048
  22. ZINC SULFATE [Concomitant]
     Dosage: CHELATED ZINC 15 MG
  23. SUSTAINED EYE DROP (NO PRESERVATIVES) [Concomitant]
  24. XOPENEX [Concomitant]
  25. DEXILANT [Concomitant]
     Dosage: 60 MG,
  26. SUMATRIPTAN [Concomitant]
     Dosage: 100 MG,
  27. POTASSIUM CHLORIDE [Concomitant]
  28. LYDEXCIUM [Concomitant]
  29. FIORICET [Concomitant]
     Route: 048
  30. MAGNESIUM [Concomitant]
     Dosage: 400 MG,
     Route: 048
  31. VITAMIN E [Concomitant]
     Dosage: 1000 IU
  32. CALCIUM [Concomitant]
  33. IPRATROPIUM BROMIDE [Concomitant]
     Dosage: 0.02 %,

REACTIONS (7)
  - GLAUCOMA [None]
  - SKIN BURNING SENSATION [None]
  - RASH [None]
  - URINE CALCIUM INCREASED [None]
  - ERYTHEMA [None]
  - FEELING HOT [None]
  - PRURITUS [None]
